FAERS Safety Report 9110562 (Version 3)
Quarter: 2013Q1

REPORT INFORMATION
  Report Type: Spontaneous
  Country: JP (occurrence: JP)
  Receive Date: 20130221
  Receipt Date: 20130321
  Transmission Date: 20140127
  Serious: Yes (Hospitalization)
  Sender: FDA-Public Use
  Company Number: JP-JNJFOC-20130210402

PATIENT
  Sex: Male

DRUGS (12)
  1. SIMPONI [Suspect]
     Indication: RHEUMATOID ARTHRITIS
     Route: 058
     Dates: start: 20121017, end: 20130109
  2. PREDNISOLONE [Suspect]
     Indication: RHEUMATOID ARTHRITIS
     Route: 048
  3. METHOTREXATE [Suspect]
     Indication: RHEUMATOID ARTHRITIS
     Dosage: 16 DF
     Route: 048
  4. FOSAMAC [Concomitant]
     Route: 048
     Dates: start: 20120424, end: 20121212
  5. RECALBON [Concomitant]
     Route: 048
     Dates: start: 20121212
  6. OPAPROSMON [Concomitant]
     Route: 048
  7. MYONAL [Concomitant]
     Route: 048
  8. GASTER D [Concomitant]
     Route: 048
  9. FASTIC [Concomitant]
     Route: 048
  10. NEUROTROPIN [Concomitant]
     Dosage: 16 DF
     Route: 048
  11. LOXONIN [Concomitant]
     Dosage: 16 DF
     Route: 048
  12. MUCOSTA [Concomitant]
     Dosage: 16 DF
     Route: 048

REACTIONS (1)
  - Osteomyelitis [Recovered/Resolved]
